FAERS Safety Report 4742863-6 (Version None)
Quarter: 2005Q3

REPORT INFORMATION
  Report Type: 
  Country: None (occurrence: None)
  Receive Date: 20050810
  Receipt Date: 20050810
  Transmission Date: 20060218
  Serious: Yes (Hospitalization)
  Sender: FDA-Public Use
  Company Number: None

PATIENT
  Age: 56 Year
  Sex: Female
  Weight: 70.2 kg

DRUGS (10)
  1. ZOLOFT [Suspect]
     Indication: DEPRESSION
     Dosage: 50MG   DAILY   ORAL
     Route: 048
     Dates: start: 20050406, end: 20050516
  2. PLAVIX [Concomitant]
  3. REGLAN [Concomitant]
  4. LANTUS [Concomitant]
  5. LISINOPRIL [Concomitant]
  6. SYNTHROID [Concomitant]
  7. ARANESP [Concomitant]
  8. NEXIUM [Concomitant]
  9. METOPROLOL [Concomitant]
  10. HEPRIN SC [Concomitant]

REACTIONS (1)
  - LIVER FUNCTION TEST ABNORMAL [None]
